FAERS Safety Report 10215158 (Version 2)
Quarter: 2015Q2

REPORT INFORMATION
  Report Type: Spontaneous
  Country: US (occurrence: US)
  Receive Date: 20140603
  Receipt Date: 20150527
  Transmission Date: 20150821
  Serious: Yes (Other)
  Sender: FDA-Public Use
  Company Number: PHHY2014US063552

PATIENT
  Age: 92 Year
  Sex: Male

DRUGS (1)
  1. HEPARIN [Suspect]
     Active Substance: HEPARIN SODIUM
     Indication: THROMBOSIS PROPHYLAXIS
     Route: 058

REACTIONS (6)
  - Deep vein thrombosis [Unknown]
  - Adrenal mass [Unknown]
  - Heparin-induced thrombocytopenia [Unknown]
  - Adrenal haemorrhage [Unknown]
  - Hyponatraemia [Recovering/Resolving]
  - Adrenal insufficiency [Unknown]
